FAERS Safety Report 14670337 (Version 1)
Quarter: 2018Q1

REPORT INFORMATION
  Report Type: Spontaneous
  Country: US (occurrence: US)
  Receive Date: 20180322
  Receipt Date: 20180322
  Transmission Date: 20180509
  Serious: No
  Sender: FDA-Public Use
  Company Number: US-ADAMAS PHARMACEUTICALS-2018ADA00111

PATIENT
  Sex: Female

DRUGS (16)
  1. SYNTHROID [Concomitant]
     Active Substance: LEVOTHYROXINE SODIUM
  2. CALCIUM [Concomitant]
     Active Substance: CALCIUM
  3. Q10 [Concomitant]
  4. RYTARY [Concomitant]
     Active Substance: CARBIDOPA\LEVODOPA
  5. TURMERIC [Concomitant]
     Active Substance: HERBALS\TURMERIC
  6. BIOTIN [Concomitant]
     Active Substance: BIOTIN
  7. CLONAZEPAM. [Concomitant]
     Active Substance: CLONAZEPAM
  8. GOCOVRI [Suspect]
     Active Substance: AMANTADINE
     Dosage: 137 MG, 1X/DAY AT BEDTIME
     Route: 048
     Dates: start: 20180130, end: 20180205
  9. PRAMIPEXOLE. [Concomitant]
     Active Substance: PRAMIPEXOLE
  10. ZOLPIDEM [Concomitant]
     Active Substance: ZOLPIDEM\ZOLPIDEM TARTRATE
  11. OSTIOBIFLEX [Concomitant]
  12. VITAMIN (UNSPECIFIED) [Concomitant]
  13. CINNAMON CAPSULES [Concomitant]
  14. VITAMIN B COMPLEX [Concomitant]
     Active Substance: CYANOCOBALAMIN\DEXPANTHENOL\NIACINAMIDE\PYRIDOXINE HYDROCHLORIDE\RIBOFLAVIN 5^-PHOSPHATE SODIUM\THIAMINE HYDROCHLORIDE\VITAMIN B COMPLEX
  15. LECITHIN [Concomitant]
     Active Substance: LECITHIN
  16. GOCOVRI [Suspect]
     Active Substance: AMANTADINE
     Indication: DYSKINESIA
     Dosage: 274 MG, 1X/DAY AT BEDTIME
     Route: 048
     Dates: start: 20180206

REACTIONS (1)
  - Tremor [Not Recovered/Not Resolved]

NARRATIVE: CASE EVENT DATE: 2018
